FAERS Safety Report 6297526-5 (Version None)
Quarter: 2009Q3

REPORT INFORMATION
  Report Type: 
  Country: None (occurrence: None)
  Receive Date: 20090804
  Receipt Date: 20090804
  Transmission Date: 20100115
  Serious: Yes (Hospitalization)
  Sender: FDA-Public Use
  Company Number: None

PATIENT
  Sex: Female
  Weight: 59 kg

DRUGS (3)
  1. GLEEVEC [Suspect]
     Indication: METASTATIC MALIGNANT MELANOMA
     Dosage: 400 MILLIGRAMS TWICE A DAY ORAL 047
     Route: 048
     Dates: start: 20090620, end: 20090728
  2. OXYCONTIN [Concomitant]
  3. LYRICA [Concomitant]

REACTIONS (9)
  - ANAEMIA [None]
  - COLONIC POLYP [None]
  - GASTROINTESTINAL HAEMORRHAGE [None]
  - HAEMORRHOIDAL HAEMORRHAGE [None]
  - HAEMORRHOIDS [None]
  - HYDRONEPHROSIS [None]
  - LYMPHADENOPATHY [None]
  - METASTATIC MALIGNANT MELANOMA [None]
  - PAIN [None]
